FAERS Safety Report 9468918 (Version 1)
Quarter: 2013Q3

REPORT INFORMATION
  Report Type: Spontaneous
  Country: US (occurrence: US)
  Receive Date: 20130821
  Receipt Date: 20130821
  Transmission Date: 20140515
  Serious: Yes (Hospitalization, Other)
  Sender: FDA-Public Use
  Company Number: US-ELI_LILLY_AND_COMPANY-US201308004831

PATIENT
  Age: 70 Year
  Sex: Female
  Weight: 68.02 kg

DRUGS (2)
  1. HUMALOG LISPRO [Suspect]
  2. NOVOLOG [Suspect]

REACTIONS (7)
  - Blood glucose decreased [Recovered/Resolved]
  - Memory impairment [Recovered/Resolved]
  - Hyperhidrosis [Unknown]
  - Dyspnoea [Unknown]
  - Asthenia [Unknown]
  - Pallor [Unknown]
  - Blood glucose fluctuation [Unknown]
